FAERS Safety Report 5784811-6 (Version None)
Quarter: 2008Q2

REPORT INFORMATION
  Report Type: 
  Country: None (occurrence: None)
  Receive Date: 20080605
  Receipt Date: 20080415
  Transmission Date: 20081010
  Serious: No
  Sender: FDA-Public Use
  Company Number: A0722797A

PATIENT
  Age: 44 Year
  Sex: Female
  Weight: 84.1 kg

DRUGS (3)
  1. ALLI [Suspect]
     Route: 048
     Dates: start: 20080408
  2. ANTIDEPRESSANT [Concomitant]
  3. UNKNOWN MEDICATION [Concomitant]

REACTIONS (5)
  - CHANGE OF BOWEL HABIT [None]
  - CONSTIPATION [None]
  - DEFAECATION URGENCY [None]
  - FLATULENCE [None]
  - NAUSEA [None]
